FAERS Safety Report 5355256-8 (Version None)
Quarter: 2007Q2

REPORT INFORMATION
  Report Type: 
  Country: None (occurrence: None)
  Receive Date: 20070613
  Receipt Date: 20070607
  Transmission Date: 20071010
  Serious: No
  Sender: FDA-Public Use
  Company Number: US-JNJFOC-20070602315

PATIENT
  Sex: Female
  Weight: 81.65 kg

DRUGS (8)
  1. RISPERDAL [Suspect]
     Route: 048
  2. RISPERDAL [Suspect]
     Indication: SCHIZOPHRENIA, PARANOID TYPE
     Route: 048
  3. INVEGA [Suspect]
     Indication: SCHIZOPHRENIA, PARANOID TYPE
     Route: 048
  4. CALCIUM CHLORIDE [Concomitant]
     Indication: NUTRITIONAL SUPPORT
  5. XANAX [Concomitant]
     Indication: ANXIETY
  6. AMBIEN [Concomitant]
     Indication: SLEEP DISORDER
  7. ZOLOFT [Concomitant]
     Indication: DEPRESSION
  8. UNSPECIFIED MEDICATION [Concomitant]
     Indication: HYPOTHYROIDISM

REACTIONS (1)
  - OSTEOPOROSIS [None]
